FAERS Safety Report 5699794-7 (Version None)
Quarter: 2008Q2

REPORT INFORMATION
  Report Type: 
  Country: None (occurrence: None)
  Receive Date: 20080410
  Receipt Date: 20080410
  Transmission Date: 20081010
  Serious: Yes (Life-Threatening, Hospitalization, Other)
  Sender: FDA-Public Use
  Company Number: None

PATIENT
  Age: 85 Year
  Sex: Male
  Weight: 83.9154 kg

DRUGS (1)
  1. HEPARIN [Suspect]
     Indication: SURGERY
     Dosage: CONTINUOUS 041
     Dates: start: 20071204, end: 20071213

REACTIONS (4)
  - BLOOD TEST ABNORMAL [None]
  - DYSPHAGIA [None]
  - GASTROINTESTINAL NECROSIS [None]
  - VENOUS THROMBOSIS [None]
